FAERS Safety Report 10069390 (Version 1)
Quarter: 2014Q2

REPORT INFORMATION
  Report Type: Spontaneous
  Country: CA (occurrence: CA)
  Receive Date: 20140410
  Receipt Date: 20140410
  Transmission Date: 20141212
  Serious: Yes (Hospitalization)
  Sender: FDA-Public Use
  Company Number: CA-009507513-1404CAN002341

PATIENT
  Sex: Male

DRUGS (4)
  1. REMERON RD [Suspect]
     Dosage: 15 MG, UNK
     Route: 065
  2. PHENOBARBITAL [Suspect]
     Dosage: 45 MG, UNK
     Route: 065
  3. KEPPRA [Suspect]
     Dosage: 500 MG, UNK
     Route: 065
  4. DILANTIN [Suspect]
     Dosage: 100 MG, UNK
     Route: 065

REACTIONS (2)
  - Discomfort [Not Recovered/Not Resolved]
  - Gait disturbance [Not Recovered/Not Resolved]
